FAERS Safety Report 10143993 (Version 1)
Quarter: 2014Q2

REPORT INFORMATION
  Report Type: Spontaneous
  Country: US (occurrence: US)
  Receive Date: 20140430
  Receipt Date: 20140430
  Transmission Date: 20141212
  Serious: Yes (Other)
  Sender: FDA-Public Use
  Company Number: US-BRISTOL-MYERS SQUIBB COMPANY-20667580

PATIENT
  Age: 37 Year
  Sex: Female
  Weight: 96.6 kg

DRUGS (19)
  1. ABILIFY [Suspect]
     Dosage: FOR 2 WEEK
     Route: 048
  2. ABILIFY MAINTENA INJECTION [Interacting]
     Dosage: FOR EXTENDED-REL EASE INJECTABLE SUSPENSION
     Route: 030
     Dates: start: 20140403
  3. LATUDA [Suspect]
  4. KLONOPIN [Concomitant]
  5. PROPRANOLOL [Concomitant]
  6. CYMBALTA [Concomitant]
  7. NEURONTIN [Concomitant]
  8. COLACE [Concomitant]
  9. DAYPRO [Concomitant]
  10. IBUPROFEN [Concomitant]
  11. IMITREX [Concomitant]
  12. LASIX [Concomitant]
  13. LYRICA [Concomitant]
  14. ZOFRAN [Concomitant]
  15. ZANAFLEX [Concomitant]
  16. BENTYL [Concomitant]
  17. PRILOSEC [Concomitant]
  18. LIDOCAINE [Concomitant]
     Dosage: LIQUID
  19. LEVOTHYROXINE [Concomitant]

REACTIONS (3)
  - Convulsion [Unknown]
  - Drug abuse [Unknown]
  - Drug interaction [Unknown]
